FAERS Safety Report 7380665-5 (Version None)
Quarter: 2011Q1

REPORT INFORMATION
  Report Type: 
  Country: None (occurrence: None)
  Receive Date: 20110329
  Receipt Date: 20110321
  Transmission Date: 20110831
  Serious: Yes (Other)
  Sender: FDA-Public Use
  Company Number: DE-AMGEN-DEUSP2011008352

PATIENT
  Sex: Female

DRUGS (12)
  1. HUMALOG [Concomitant]
  2. ASS 1 A PHARMA [Concomitant]
     Route: 048
  3. NOVAMINSULFON [Concomitant]
     Dosage: UNK UNK, QID
     Route: 048
  4. ERGENYL [Concomitant]
     Route: 048
  5. AVELOX [Concomitant]
     Dosage: 400 MG, QD
     Route: 048
  6. TILIDIN [Concomitant]
     Route: 048
  7. LORAZEPAM RATIOPHARM [Concomitant]
     Dosage: 0.5 MG, UNK
     Route: 048
  8. OMEPRAZOLE [Concomitant]
     Dosage: 20 MG, UNK
     Route: 048
  9. LAXOBERAL [Concomitant]
  10. PROLIA [Suspect]
     Indication: OSTEOPOROSIS
     Dosage: 60 MG, ONE TIME DOSE
     Route: 058
     Dates: start: 20100823
  11. DREISAVIT N [Concomitant]
     Dosage: UNK
     Route: 048
  12. CALCIUM DURA [Concomitant]
     Route: 048

REACTIONS (2)
  - BLOOD PARATHYROID HORMONE INCREASED [None]
  - HYPOCALCAEMIA [None]
